FAERS Safety Report 9836742 (Version 1)
Quarter: 2014Q1

REPORT INFORMATION
  Report Type: Report from Study
  Country: TW (occurrence: TW)
  Receive Date: 20140123
  Receipt Date: 20140123
  Transmission Date: 20141002
  Serious: No
  Sender: FDA-Public Use
  Company Number: PHHY2014TW007387

PATIENT
  Age: 52 Year
  Sex: Female

DRUGS (10)
  1. AMN107 [Suspect]
  2. RANITIDINE [Concomitant]
     Indication: GASTRIC ULCER
     Dates: start: 20120209, end: 20120503
  3. RANITIDINE [Concomitant]
     Dates: start: 20130307
  4. LANSOPRAZOLE [Concomitant]
     Indication: GASTRIC ULCER
     Dates: start: 20120405, end: 20120517
  5. LANSOPRAZOLE [Concomitant]
     Dates: start: 20121115, end: 20130207
  6. METOCLOPRAMIDE [Concomitant]
     Indication: DYSPEPSIA
     Dates: start: 20120809, end: 20120816
  7. DIMETHYLPOLYSILOXANE [Concomitant]
     Indication: DYSPEPSIA
     Dates: start: 20120809, end: 20120816
  8. COMPOUND GLYCYRRHIZA MIXTURE SOLN [Concomitant]
     Indication: COUGH
     Dates: start: 20130207, end: 20130209
  9. FERROUS FUMARATE [Concomitant]
     Indication: ANAEMIA
     Dates: start: 20121018, end: 20130207
  10. ULSTAL [Concomitant]
     Indication: ANTACID THERAPY
     Dates: start: 20121001, end: 20121003

REACTIONS (1)
  - Dyspepsia [Unknown]
